FAERS Safety Report 6801328-8 (Version None)
Quarter: 2010Q2

REPORT INFORMATION
  Report Type: 
  Country: None (occurrence: None)
  Receive Date: 20100629
  Receipt Date: 20100618
  Transmission Date: 20101027
  Serious: Yes (Hospitalization)
  Sender: FDA-Public Use
  Company Number: A0718452A

PATIENT
  Age: 73 Year
  Sex: Female
  Weight: 72.7 kg

DRUGS (12)
  1. AVANDIA [Suspect]
     Route: 048
     Dates: start: 20050426, end: 20070301
  2. AVANDAMET [Suspect]
     Route: 048
     Dates: start: 20040701, end: 20070601
  3. GLUCOPHAGE [Concomitant]
     Dates: start: 20030612, end: 20040201
  4. METFORMIN HCL [Concomitant]
     Dates: start: 20040201, end: 20070401
  5. AMARYL [Concomitant]
     Dates: start: 20010901, end: 20040701
  6. LISINOPRIL [Concomitant]
  7. HYDROCHLOROTHIAZIDE [Concomitant]
  8. NIFEDIPINE [Concomitant]
  9. ENALAPRIL MALEATE [Concomitant]
  10. PRILOSEC [Concomitant]
  11. LORAZEPAM [Concomitant]
  12. FUROSEMIDE [Concomitant]

REACTIONS (3)
  - ARTERIOSCLEROSIS CORONARY ARTERY [None]
  - CARDIAC FAILURE CONGESTIVE [None]
  - MYOCARDIAL INFARCTION [None]
